FAERS Safety Report 6454418-6 (Version None)
Quarter: 2009Q4

REPORT INFORMATION
  Report Type: 
  Country: None (occurrence: None)
  Receive Date: 20091124
  Receipt Date: 20091111
  Transmission Date: 20100525
  Serious: Yes (Other)
  Sender: FDA-Public Use
  Company Number: PHHY2009MX42443

PATIENT
  Sex: Female

DRUGS (2)
  1. DIOVAN [Suspect]
     Indication: HYPERTENSION
     Dosage: 1 TABLET (80 MG) PER DAY
     Dates: start: 20080801, end: 20090928
  2. DIOVAN [Suspect]
     Dosage: UNK
     Dates: start: 20091002

REACTIONS (1)
  - PNEUMONIA [None]
